FAERS Safety Report 10377978 (Version 1)
Quarter: 2014Q3

REPORT INFORMATION
  Report Type: Other
  Country: FR (occurrence: FR)
  Receive Date: 20140812
  Receipt Date: 20140812
  Transmission Date: 20150326
  Serious: Yes (Hospitalization)
  Sender: FDA-Public Use
  Company Number: FR-MYLANLABS-2014M1000599

PATIENT

DRUGS (3)
  1. TEMESTA                            /00273201/ [Suspect]
     Active Substance: LORAZEPAM
     Indication: NEUROSIS
     Route: 048
  2. ZOLPIDEM TARTRATE. [Suspect]
     Active Substance: ZOLPIDEM TARTRATE
     Indication: INSOMNIA
     Dosage: 5 MG, QD
     Route: 048
  3. AVLOCARDYL                         /00030001/ [Concomitant]
     Active Substance: PROPRANOLOL HYDROCHLORIDE
     Dosage: 120 MG, QD
     Route: 048

REACTIONS (8)
  - Loss of consciousness [Recovered/Resolved]
  - Rhabdomyolysis [None]
  - Ventricular extrasystoles [None]
  - Balance disorder [None]
  - Fall [Recovered/Resolved]
  - Sinus arrest [None]
  - Leukocytosis [None]
  - Supraventricular extrasystoles [None]

NARRATIVE: CASE EVENT DATE: 20071206
